FAERS Safety Report 12717619 (Version 1)
Quarter: 2016Q3

REPORT INFORMATION
  Report Type: Other
  Country: US (occurrence: US)
  Receive Date: 20160906
  Receipt Date: 20160906
  Transmission Date: 20161109
  Serious: Yes (Other)
  Sender: FDA-Public Use
  Company Number: US-SHIRE-US201610851

PATIENT
  Sex: Female

DRUGS (1)
  1. GATTEX [Suspect]
     Active Substance: TEDUGLUTIDE\WATER
     Indication: PRODUCT USED FOR UNKNOWN INDICATION
     Dosage: 0.275 ML, 1X/DAY:QD
     Route: 058

REACTIONS (7)
  - Gastrointestinal stoma complication [Unknown]
  - Malaise [Unknown]
  - Blindness [Unknown]
  - Fatigue [Unknown]
  - Sepsis [Unknown]
  - Gastrointestinal stoma output increased [Unknown]
  - Depressed mood [Unknown]

NARRATIVE: CASE EVENT DATE: 2016
